FAERS Safety Report 5296529-7 (Version None)
Quarter: 2007Q2

REPORT INFORMATION
  Report Type: 
  Country: None (occurrence: None)
  Receive Date: 20070413
  Receipt Date: 20070131
  Transmission Date: 20071010
  Serious: Yes (Hospitalization)
  Sender: FDA-Public Use
  Company Number: FR-BRISTOL-MYERS SQUIBB COMPANY-13744669

PATIENT
  Age: 62 Year
  Sex: Female

DRUGS (6)
  1. LYSODREN [Suspect]
     Indication: ADRENAL CARCINOMA
     Route: 048
  2. LEVOTHYROXINE SODIUM [Concomitant]
  3. DIFFU-K [Concomitant]
  4. KARDEGIC [Concomitant]
  5. CELECTOL [Concomitant]
  6. HYDROCORTISONE [Concomitant]

REACTIONS (5)
  - ASTHENIA [None]
  - DIARRHOEA [None]
  - DIVERTICULITIS [None]
  - DRUG LEVEL INCREASED [None]
  - GASTROINTESTINAL CANDIDIASIS [None]
